FAERS Safety Report 7025074-3 (Version None)
Quarter: 2010Q4

REPORT INFORMATION
  Report Type: 
  Country: None (occurrence: None)
  Receive Date: 20101001
  Receipt Date: 20100927
  Transmission Date: 20110411
  Serious: Yes (Death, Hospitalization)
  Sender: FDA-Public Use
  Company Number: US-ABBOTT-10P-163-0673304-00

PATIENT
  Sex: Male

DRUGS (20)
  1. ZEMPLAR [Suspect]
     Indication: RENAL FAILURE
     Dates: start: 20070101, end: 20090101
  2. LIPITOR [Concomitant]
     Indication: BLOOD CHOLESTEROL INCREASED
     Dates: end: 20090101
  3. COREG [Concomitant]
     Indication: HYPERTENSION
     Dates: end: 20090101
  4. LANOXIN [Concomitant]
     Indication: PRODUCT USED FOR UNKNOWN INDICATION
     Dates: end: 20090101
  5. DIOVAN [Concomitant]
     Indication: PRODUCT USED FOR UNKNOWN INDICATION
     Dates: end: 20090101
  6. NORVASC [Concomitant]
     Indication: HYPERTENSION
  7. BUMEX [Concomitant]
     Indication: CARDIAC FAILURE CONGESTIVE
     Dates: end: 20090101
  8. PRILOSEC [Concomitant]
     Indication: PRODUCT USED FOR UNKNOWN INDICATION
     Dates: end: 20090101
  9. LEVIMIR INSULIN [Concomitant]
     Indication: DIABETES MELLITUS
     Dosage: 9 UNITS AT DINNER TIME
     Route: 058
     Dates: end: 20090101
  10. HEPARIN [Concomitant]
     Indication: PRODUCT USED FOR UNKNOWN INDICATION
     Dates: end: 20090101
  11. PLAVIX [Concomitant]
     Indication: PRODUCT USED FOR UNKNOWN INDICATION
     Dates: end: 20090101
  12. FLOMAX [Concomitant]
     Indication: PRODUCT USED FOR UNKNOWN INDICATION
     Dates: end: 20090101
  13. ARANESP [Concomitant]
     Indication: ANAEMIA
     Route: 050
     Dates: end: 20090101
  14. ASPIRIN [Concomitant]
     Indication: PRODUCT USED FOR UNKNOWN INDICATION
     Dates: end: 20090101
  15. SODIUM BICARBONATE [Concomitant]
     Indication: PRODUCT USED FOR UNKNOWN INDICATION
     Dates: end: 20090101
  16. IRON [Concomitant]
     Indication: ANAEMIA
     Dates: end: 20090101
  17. MULTI-VITAMIN [Concomitant]
     Indication: VITAMIN SUPPLEMENTATION
     Dates: end: 20090101
  18. TEMAZEPAM [Concomitant]
     Indication: INSOMNIA
     Dates: end: 20090101
  19. ALBUTEROL [Concomitant]
     Indication: PRODUCT USED FOR UNKNOWN INDICATION
     Dosage: 2.5MG/3ML NEBULIZER 2-3 TIMES A DAY
     Dates: end: 20090101
  20. OXYGEN [Concomitant]
     Indication: PRODUCT USED FOR UNKNOWN INDICATION
     Dosage: 24 HRS A DAY, 7 DAYS A WEEK
     Dates: end: 20090101

REACTIONS (4)
  - DYSPNOEA [None]
  - DYSURIA [None]
  - OEDEMA PERIPHERAL [None]
  - RENAL FAILURE [None]
